FAERS Safety Report 13309737 (Version 1)
Quarter: 2017Q1

REPORT INFORMATION
  Report Type: Spontaneous
  Country: US (occurrence: US)
  Receive Date: 20170309
  Receipt Date: 20170309
  Transmission Date: 20170428
  Serious: Yes (Life-Threatening, Hospitalization, Disabling, Other)
  Sender: FDA-Public Use
  Company Number: None

PATIENT
  Age: 26 Year
  Sex: Female
  Weight: 42 kg

DRUGS (12)
  1. CONNORAN 40 [Concomitant]
  2. CONTROMET [Concomitant]
  3. LANTUS [Concomitant]
     Active Substance: INSULIN GLARGINE
  4. CHASTEBERRY TEA [Concomitant]
  5. ADCODOL [Concomitant]
  6. DEPO-PROVERA [Suspect]
     Active Substance: MEDROXYPROGESTERONE ACETATE
     Indication: MENORRHAGIA
     Dosage: ?          OTHER FREQUENCY:EVERY 12 WEEKS;?
     Route: 030
  7. DEPO-PROVERA [Suspect]
     Active Substance: MEDROXYPROGESTERONE ACETATE
     Indication: BLOOD GLUCOSE INCREASED
     Dosage: ?          OTHER FREQUENCY:EVERY 12 WEEKS;?
     Route: 030
  8. LACTOVITA [Concomitant]
  9. PROSANA HAIR AND NAILS [Concomitant]
  10. DIOVAN [Concomitant]
     Active Substance: VALSARTAN
  11. APIDRA [Concomitant]
     Active Substance: INSULIN GLULISINE
  12. BIOSPASMOL [Concomitant]

REACTIONS (19)
  - Weight decreased [None]
  - Insulin resistance [None]
  - Nausea [None]
  - Headache [None]
  - Hot flush [None]
  - Libido decreased [None]
  - Fatigue [None]
  - Suicidal ideation [None]
  - Abdominal discomfort [None]
  - Dizziness [None]
  - Anger [None]
  - Quality of life decreased [None]
  - Anxiety [None]
  - Insomnia [None]
  - Abdominal distension [None]
  - Psychotic disorder [None]
  - Diabetes mellitus inadequate control [None]
  - Emotional disorder [None]
  - Depression [None]

NARRATIVE: CASE EVENT DATE: 20151101
